FAERS Safety Report 7504739-0 (Version None)
Quarter: 2011Q2

REPORT INFORMATION
  Report Type: 
  Country: None (occurrence: None)
  Receive Date: 20110525
  Receipt Date: 20101123
  Transmission Date: 20111010
  Serious: No
  Sender: FDA-Public Use
  Company Number: US-AMGEN-USASP2010006595

PATIENT
  Age: 66 Year
  Sex: Female

DRUGS (2)
  1. ARANESP [Suspect]
     Indication: RENAL FAILURE CHRONIC
     Dosage: 60 A?G, QWK
  2. ARANESP [Suspect]
     Dosage: 60 A?G, Q2WK

REACTIONS (1)
  - DRUG INEFFECTIVE [None]
